FAERS Safety Report 13072875 (Version 4)
Quarter: 2018Q4

REPORT INFORMATION
  Report Type: Spontaneous
  Country: US (occurrence: US)
  Receive Date: 20161229
  Receipt Date: 20181016
  Transmission Date: 20190204
  Serious: Yes (Other)
  Sender: FDA-Public Use
  Company Number: US-SA-2016SA214169

PATIENT
  Age: 30 Year
  Sex: Female
  Weight: 89.8 kg

DRUGS (4)
  1. PARAPLATIN [Concomitant]
     Active Substance: CARBOPLATIN
  2. DOCETAXEL. [Suspect]
     Active Substance: DOCETAXEL
     Dosage: 160 MG,Q3W
     Route: 051
     Dates: start: 20120611, end: 20120611
  3. HERCEPTIN [Concomitant]
     Active Substance: TRASTUZUMAB
  4. DOCETAXEL. [Suspect]
     Active Substance: DOCETAXEL
     Dosage: 160 MG,Q3W
     Route: 051
     Dates: start: 20120925, end: 20120925

REACTIONS (4)
  - Emotional distress [Unknown]
  - Alopecia [Not Recovered/Not Resolved]
  - Pain [Unknown]
  - Anxiety [Unknown]

NARRATIVE: CASE EVENT DATE: 20130325
